FAERS Safety Report 5281280-X (Version None)
Quarter: 2007Q1

REPORT INFORMATION
  Report Type: 
  Country: None (occurrence: None)
  Receive Date: 20061221
  Receipt Date: 20060828
  Transmission Date: 20070707
  Serious: No
  Sender: FDA-Public Use
  Company Number: SP00961

PATIENT
  Age: 73 Year
  Sex: Female

DRUGS (3)
  1. XIFAXAN [Suspect]
     Indication: ABDOMINAL PAIN
     Dosage: 2CAP/TID, ORAL
     Route: 048
     Dates: start: 20060811
  2. FOSOMAX [Concomitant]
  3. ANTIDEPRESSANT [Concomitant]

REACTIONS (4)
  - ABDOMINAL PAIN [None]
  - DEHYDRATION [None]
  - DRUG INEFFECTIVE [None]
  - PHARMACEUTICAL PRODUCT COMPLAINT [None]
